FAERS Safety Report 25891012 (Version 1)
Quarter: 2025Q4

REPORT INFORMATION
  Report Type: Spontaneous
  Country: US (occurrence: US)
  Receive Date: 20251007
  Receipt Date: 20251007
  Transmission Date: 20260117
  Serious: Yes (Other)
  Sender: TEVA
  Company Number: US-TEVA-VS-3376476

PATIENT
  Age: 29 Year
  Sex: Female

DRUGS (1)
  1. HYDROXYCHLOROQUINE [Suspect]
     Active Substance: HYDROXYCHLOROQUINE
     Indication: Neurosarcoidosis
     Route: 065

REACTIONS (4)
  - Abortion spontaneous [Unknown]
  - Rebound effect [Unknown]
  - Urinary tract disorder [Recovered/Resolved]
  - Maternal exposure during pregnancy [Unknown]
